FAERS Safety Report 9214536 (Version 1)
Quarter: 2013Q2

REPORT INFORMATION
  Report Type: Spontaneous
  Country: JP (occurrence: JP)
  Receive Date: 20130405
  Receipt Date: 20130405
  Transmission Date: 20140414
  Serious: Yes (Hospitalization)
  Sender: FDA-Public Use
  Company Number: JP-BAYER-201012219BYL

PATIENT
  Age: 36 Year
  Sex: Female
  Weight: 56.9 kg

DRUGS (3)
  1. BAYASPIRIN [Suspect]
     Indication: ABORTION SPONTANEOUS
     Route: 048
     Dates: start: 20100410, end: 20100501
  2. BAYASPIRIN [Suspect]
     Indication: ABORTION THREATENED
  3. SAIREI-TO [Suspect]
     Indication: MENSTRUATION IRREGULAR
     Dosage: DAILY DOSE 3 DF
     Route: 048
     Dates: start: 200912, end: 20100501

REACTIONS (6)
  - Drug-induced liver injury [Recovering/Resolving]
  - Pruritus [Recovering/Resolving]
  - Jaundice [Recovering/Resolving]
  - Malaise [Recovering/Resolving]
  - Exposure during pregnancy [None]
  - Off label use [None]
